FAERS Safety Report 11716321 (Version 2)
Quarter: 2015Q4

REPORT INFORMATION
  Report Type: Spontaneous
  Country: US (occurrence: US)
  Receive Date: 20151104
  Receipt Date: 20151110
  Transmission Date: 20160304
  Serious: No
  Sender: FDA-Public Use
  Company Number: US-ELI_LILLY_AND_COMPANY-US201104005913

PATIENT
  Sex: Female

DRUGS (3)
  1. FORTEO [Suspect]
     Active Substance: TERIPARATIDE
     Dosage: UNK, QD
  2. FORTEO [Suspect]
     Active Substance: TERIPARATIDE
     Dosage: UNK, UNKNOWN
     Route: 065
  3. FORTEO [Suspect]
     Active Substance: TERIPARATIDE
     Indication: OSTEOPOROSIS
     Dosage: UNK, UNKNOWN
     Route: 065

REACTIONS (10)
  - Crepitations [Unknown]
  - Irritability [Unknown]
  - Arthritis [Not Recovered/Not Resolved]
  - Hypokinesia [Unknown]
  - Joint stiffness [Unknown]
  - Arthropathy [Not Recovered/Not Resolved]
  - Fluid retention [Unknown]
  - Nodule [Unknown]
  - Injection site erythema [Unknown]
  - Foot fracture [Unknown]
